FAERS Safety Report 24368242 (Version 1)
Quarter: 2024Q3

REPORT INFORMATION
  Report Type: Spontaneous
  Country: US (occurrence: US)
  Receive Date: 20240926
  Receipt Date: 20240926
  Transmission Date: 20241016
  Serious: No
  Sender: SANOFI AVENTIS
  Company Number: US-SA-2024SA274217

PATIENT
  Sex: Male

DRUGS (2)
  1. DUPIXENT [Suspect]
     Active Substance: DUPILUMAB
     Indication: Dermatitis atopic
     Dosage: 300 MG, QOW
     Route: 058
     Dates: start: 20171018
  2. CIBINQO [Concomitant]
     Active Substance: ABROCITINIB
     Dosage: UNK

REACTIONS (3)
  - Sleep disorder due to a general medical condition [Unknown]
  - Skin discomfort [Unknown]
  - Rash [Unknown]
